FAERS Safety Report 4999030-0 (Version None)
Quarter: 2006Q1

REPORT INFORMATION
  Report Type: 
  Country: None (occurrence: None)
  Receive Date: 20060315
  Receipt Date: 20060203
  Transmission Date: 20060701
  Serious: Yes (Other)
  Sender: FDA-Public Use
  Company Number: 435212

PATIENT
  Sex: Female

DRUGS (3)
  1. BONIVA [Suspect]
     Indication: DRUG USE FOR UNKNOWN INDICATION
     Dates: start: 20060129
  2. EXCEDRIN (*ASPIRIN/CAFFEINE/PARACETAMOL) [Concomitant]
  3. ULTRACET [Concomitant]

REACTIONS (2)
  - BONE PAIN [None]
  - MYALGIA [None]
